FAERS Safety Report 5071358-8 (Version None)
Quarter: 2006Q3

REPORT INFORMATION
  Report Type: 
  Country: None (occurrence: None)
  Receive Date: 20060804
  Receipt Date: 20060728
  Transmission Date: 20061208
  Serious: Yes (Other)
  Sender: FDA-Public Use
  Company Number: CH-ROCHE-457572

PATIENT
  Age: 41 Year
  Sex: Female

DRUGS (3)
  1. RIVOTRIL [Suspect]
     Dosage: AS NECESSARY. NO DOSE REPORTED.
     Route: 048
     Dates: start: 20010615
  2. CARBAMAZEPINE [Suspect]
     Route: 048
     Dates: start: 20010615
  3. KEPPRA [Concomitant]
     Route: 048
     Dates: start: 20010615

REACTIONS (2)
  - PERIODONTAL DESTRUCTION [None]
  - PERIODONTITIS [None]
